FAERS Safety Report 8145683-8 (Version None)
Quarter: 2012Q1

REPORT INFORMATION
  Report Type: 
  Country: None (occurrence: None)
  Receive Date: 20120217
  Receipt Date: 20110907
  Transmission Date: 20120608
  Serious: No
  Sender: FDA-Public Use
  Company Number: US-ALLERGAN-1111872US

PATIENT
  Age: 44 Year
  Sex: Female

DRUGS (1)
  1. TAZORAC [Suspect]
     Indication: ACNE
     Dosage: ONE APPLICATION
     Route: 061
     Dates: start: 20110509, end: 20110831

REACTIONS (2)
  - APPLICATION SITE ERYTHEMA [None]
  - RASH [None]
